FAERS Safety Report 20613661 (Version 1)
Quarter: 2022Q1

REPORT INFORMATION
  Report Type: Spontaneous
  Country: CA (occurrence: CA)
  Receive Date: 20220319
  Receipt Date: 20220319
  Transmission Date: 20220424
  Serious: Yes (Hospitalization, Other)
  Sender: FDA-Public Use
  Company Number: CA-AUROBINDO-AUR-APL-2022-008457

PATIENT
  Sex: Female

DRUGS (26)
  1. AMLODIPINE [Suspect]
     Active Substance: AMLODIPINE BESYLATE
     Indication: Product used for unknown indication
     Dosage: 5.0 MILLIGRAM, ONCE A DAY
     Route: 065
  2. CYCLOBENZAPRINE [Suspect]
     Active Substance: CYCLOBENZAPRINE
     Indication: Product used for unknown indication
     Dosage: 15.0 MILLIGRAM, ONCE A DAY
     Route: 065
  3. FUROSEMIDE [Suspect]
     Active Substance: FUROSEMIDE
     Indication: Product used for unknown indication
     Dosage: 40.0 MILLIGRAM, ONCE A DAY
     Route: 065
  4. LEVOFLOXACIN [Suspect]
     Active Substance: LEVOFLOXACIN
     Indication: Product used for unknown indication
     Dosage: 250.0 MILLIGRAM, ONCE A DAY
     Route: 065
  5. OMEPRAZOLE [Suspect]
     Active Substance: OMEPRAZOLE
     Indication: Product used for unknown indication
     Dosage: 20.0 MILLIGRAM, ONCE A DAY
     Route: 048
  6. ROSUVASTATIN [Suspect]
     Active Substance: ROSUVASTATIN
     Indication: Product used for unknown indication
     Dosage: 40.0 MILLIGRAM, ONCE A DAY
     Route: 048
  7. ACETAMINOPHEN [Suspect]
     Active Substance: ACETAMINOPHEN
     Indication: Product used for unknown indication
     Dosage: 650.0 MILLIGRAM
     Route: 065
  8. AGGRENOX [Suspect]
     Active Substance: ASPIRIN\DIPYRIDAMOLE
     Indication: Product used for unknown indication
     Dosage: 2.0 DOSAGE FORM, ONCE A DAY
     Route: 065
  9. ACEBUTOLOL HYDROCHLORIDE [Suspect]
     Active Substance: ACEBUTOLOL HYDROCHLORIDE
     Indication: Product used for unknown indication
     Dosage: 200.0 MILLIGRAM, ONCE A DAY
     Route: 065
  10. AMITRIPTYLINE HYDROCHLORIDE [Suspect]
     Active Substance: AMITRIPTYLINE HYDROCHLORIDE
     Indication: Product used for unknown indication
     Dosage: 5 MILLIGRAM, ONCE A DAY
     Route: 065
  11. BISACODYL [Suspect]
     Active Substance: BISACODYL
     Indication: Product used for unknown indication
     Dosage: 2.0 DOSAGE FORM
     Route: 065
  12. CARBAMAZEPINE [Suspect]
     Active Substance: CARBAMAZEPINE
     Indication: Product used for unknown indication
     Dosage: 400.0 MILLIGRAM, ONCE A DAY
     Route: 065
  13. DILTIAZEM HYDROCHLORIDE [Suspect]
     Active Substance: DILTIAZEM HYDROCHLORIDE
     Indication: Product used for unknown indication
     Dosage: 1.0 DOSAGE FORM, ONCE A DAY
     Route: 065
  14. GALANTAMINE HYDROCHLORIDE [Suspect]
     Active Substance: GALANTAMINE HYDROCHLORIDE
     Indication: Product used for unknown indication
     Dosage: 16.0 MILLIGRAM, ONCE A DAY
     Route: 065
  15. GLUCOSAMINE [Suspect]
     Active Substance: GLUCOSAMINE
     Indication: Product used for unknown indication
     Dosage: 1000.0 MILLIGRAM, ONCE A DAY
     Route: 065
  16. NITROGLYCERIN [Suspect]
     Active Substance: NITROGLYCERIN
     Indication: Product used for unknown indication
     Dosage: 1.0 DOSAGE FORM, ONCE A DAY
     Route: 065
  17. LACTULOSE [Suspect]
     Active Substance: LACTULOSE
     Indication: Product used for unknown indication
     Dosage: 15.0 MILLIGRAM/MILLILITRE, ONCE A DAY
     Route: 048
  18. LEVOTHYROXINE SODIUM [Suspect]
     Active Substance: LEVOTHYROXINE SODIUM
     Indication: Product used for unknown indication
     Dosage: 0.888 MILLIGRAM, ONCE A DAY
     Route: 065
  19. MAGNESIUM HYDROXIDE [Suspect]
     Active Substance: MAGNESIUM HYDROXIDE
     Indication: Product used for unknown indication
     Dosage: 622.0 MILLIGRAM, ONCE A DAY
     Route: 065
  20. MORPHINE [Suspect]
     Active Substance: MORPHINE
     Indication: Product used for unknown indication
     Dosage: 10.0 MILLIGRAM, ONCE A DAY
     Route: 065
  21. OXAZEPAM [Suspect]
     Active Substance: OXAZEPAM
     Indication: Product used for unknown indication
     Dosage: 15.0 MILLIGRAM, ONCE A DAY
     Route: 065
  22. ALBUTEROL [Suspect]
     Active Substance: ALBUTEROL
     Indication: Product used for unknown indication
     Dosage: 800.0 MILLIGRAM, ONCE A DAY
     Route: 065
  23. SPIRIVA [Suspect]
     Active Substance: TIOTROPIUM BROMIDE MONOHYDRATE
     Indication: Product used for unknown indication
     Dosage: 18.0 MILLIGRAM, ONCE A DAY
     Route: 065
  24. CRANBERRY [Suspect]
     Active Substance: CRANBERRY
     Indication: Product used for unknown indication
     Dosage: 1500.0 MILLIGRAM, ONCE A DAY
     Route: 065
  25. QUINAPRIL HYDROCHLORIDE [Suspect]
     Active Substance: QUINAPRIL HYDROCHLORIDE
     Indication: Product used for unknown indication
     Dosage: 40.0 MILLIGRAM, ONCE A DAY
     Route: 065
  26. PSYLLIUM HUSK [Concomitant]
     Active Substance: PSYLLIUM HUSK
     Indication: Product used for unknown indication
     Dosage: UNK
     Route: 065

REACTIONS (7)
  - Balance disorder [Unknown]
  - Cognitive disorder [Unknown]
  - Constipation [Unknown]
  - Fall [Unknown]
  - Orthostatic hypotension [Unknown]
  - Toxicity to various agents [Unknown]
  - Sedation [Unknown]
